FAERS Safety Report 12024446 (Version 1)
Quarter: 2016Q1

REPORT INFORMATION
  Report Type: Report from Study
  Country: US (occurrence: US)
  Receive Date: 20160206
  Receipt Date: 20160206
  Transmission Date: 20160526
  Serious: Yes (Hospitalization)
  Sender: FDA-Public Use
  Company Number: US-ABBVIE-15K-163-1480104-00

PATIENT
  Sex: Male

DRUGS (1)
  1. HUMIRA [Suspect]
     Active Substance: ADALIMUMAB
     Indication: CROHN^S DISEASE
     Route: 058
     Dates: start: 201504

REACTIONS (4)
  - Lung infection [Unknown]
  - Lung infiltration [Recovered/Resolved]
  - Atypical mycobacterial infection [Recovered/Resolved]
  - Mycobacterium test positive [Recovered/Resolved]

NARRATIVE: CASE EVENT DATE: 2015
